FAERS Safety Report 6509815-7 (Version None)
Quarter: 2009Q4

REPORT INFORMATION
  Report Type: 
  Country: None (occurrence: None)
  Receive Date: 20091221
  Receipt Date: 20091221
  Transmission Date: 20100525
  Serious: Yes (Other)
  Sender: FDA-Public Use
  Company Number: None

PATIENT
  Age: 10 Year
  Sex: Male
  Weight: 77 kg

DRUGS (1)
  1. KEPPRA XR [Suspect]
     Indication: EPILEPSY
     Dosage: 500 MG TAB

REACTIONS (1)
  - CONVULSION [None]
